FAERS Safety Report 6928265-2 (Version None)
Quarter: 2010Q3

REPORT INFORMATION
  Report Type: 
  Country: None (occurrence: None)
  Receive Date: 20100817
  Receipt Date: 20100805
  Transmission Date: 20110219
  Serious: Yes (Hospitalization)
  Sender: FDA-Public Use
  Company Number: US-ROCHE-719996

PATIENT
  Sex: Female
  Weight: 67.4 kg

DRUGS (3)
  1. BEVACIZUMAB [Suspect]
     Dosage: FORM: VIALS
     Route: 042
     Dates: start: 20090123, end: 20091125
  2. GEMCITABINE [Suspect]
     Dosage: FORM: VIALS
     Route: 042
     Dates: start: 20090623, end: 20091125
  3. PACLITAXEL [Concomitant]
     Route: 042

REACTIONS (3)
  - HYDRONEPHROSIS [None]
  - RENAL FAILURE ACUTE [None]
  - URINARY TRACT INFECTION [None]
